FAERS Safety Report 10623282 (Version 2)
Quarter: 2014Q4

REPORT INFORMATION
  Report Type: Report from Study
  Country: TR (occurrence: TR)
  Receive Date: 20141203
  Receipt Date: 20141203
  Transmission Date: 20150529
  Serious: Yes (Other)
  Sender: FDA-Public Use
  Company Number: TR-ASTRAZENECA-2014SE90797

PATIENT
  Age: 71 Year
  Sex: Female

DRUGS (8)
  1. TROPAMIDE [Suspect]
     Active Substance: TROPICAMIDE
  2. OFLOXACIN. [Suspect]
     Active Substance: OFLOXACIN
     Dosage: FOUR TIMES A DAY
     Route: 061
  3. MARCAINE [Suspect]
     Active Substance: BUPIVACAINE HYDROCHLORIDE
     Route: 053
  4. MYDFRIN [Suspect]
     Active Substance: PHENYLEPHRINE HYDROCHLORIDE
  5. PREDNISOLONE ACETATE. [Suspect]
     Active Substance: PREDNISOLONE ACETATE
     Dosage: FOUR TIMES A DAY
     Route: 061
  6. EASY-LURON [Suspect]
     Active Substance: HYALURONATE SODIUM
  7. EASY VISC [Suspect]
     Active Substance: HYPROMELLOSES
  8. MOXIFLOXACIN [Suspect]
     Active Substance: MOXIFLOXACIN
     Indication: INFECTION PROPHYLAXIS
     Dosage: INTRACAMERALLY

REACTIONS (1)
  - Toxic anterior segment syndrome [Not Recovered/Not Resolved]
